FAERS Safety Report 10614937 (Version 1)
Quarter: 2014Q4

REPORT INFORMATION
  Report Type: Spontaneous
  Country: US (occurrence: None)
  Receive Date: 20141125
  Receipt Date: 20141125
  Transmission Date: 20150529
  Serious: No
  Sender: FDA-Public Use
  Company Number: None

PATIENT

DRUGS (2)
  1. COVERA-HS [Suspect]
     Active Substance: VERAPAMIL HYDROCHLORIDE
  2. COVARYX HS [Suspect]
     Active Substance: ESTROGENS, ESTERIFIED\METHYLTESTOSTERONE

REACTIONS (3)
  - Wrong drug administered [None]
  - Product name confusion [None]
  - Drug prescribing error [None]
